FAERS Safety Report 6409137-9 (Version None)
Quarter: 2009Q4

REPORT INFORMATION
  Report Type: 
  Country: None (occurrence: None)
  Receive Date: 20091021
  Receipt Date: 20091008
  Transmission Date: 20100525
  Serious: Yes (Hospitalization)
  Sender: FDA-Public Use
  Company Number: PHEH2009US07028

PATIENT
  Age: 44 Year
  Sex: Female

DRUGS (4)
  1. RECLAST [Suspect]
     Dosage: 5 MG
     Dates: start: 20090623
  2. METFORMIN [Concomitant]
     Dosage: 850 MG, BID
  3. KADIAN ^KNOLL^ [Concomitant]
     Indication: PAIN
     Dosage: 20 MG, QD
     Route: 048
     Dates: start: 20090617, end: 20090621
  4. KADIAN ^KNOLL^ [Concomitant]
     Dosage: 20 MG, BID
     Route: 048
     Dates: start: 20090622, end: 20090623

REACTIONS (12)
  - BLOOD CREATININE INCREASED [None]
  - BLOOD POTASSIUM INCREASED [None]
  - BLOOD UREA INCREASED [None]
  - CONFUSIONAL STATE [None]
  - GLOMERULAR FILTRATION RATE DECREASED [None]
  - HAEMOGLOBIN DECREASED [None]
  - HYPOTENSION [None]
  - LETHARGY [None]
  - MENTAL STATUS CHANGES [None]
  - MYOGLOBIN BLOOD INCREASED [None]
  - URINARY RETENTION [None]
  - URINE OUTPUT DECREASED [None]
